FAERS Safety Report 4315397-0 (Version None)
Quarter: 2004Q1

REPORT INFORMATION
  Report Type: 
  Country: None (occurrence: None)
  Receive Date: 20040309
  Receipt Date: 20040223
  Transmission Date: 20041129
  Serious: Yes (Hospitalization)
  Sender: FDA-Public Use
  Company Number: 189585

PATIENT
  Age: 68 Year
  Sex: Female
  Weight: 48.9885 kg

DRUGS (8)
  1. AVONEX [Suspect]
     Indication: MULTIPLE SCLEROSIS
     Dosage: 30 MCG QW IM
     Dates: end: 20031101
  2. VOLTAREN [Concomitant]
  3. PRAVACHOL [Concomitant]
  4. IMIPRAMINE HCL [Concomitant]
  5. CLONAZEPAM [Concomitant]
  6. HYDROCODONE [Concomitant]
  7. DARVOCET-N 100 [Concomitant]
  8. TOPROL-XL [Concomitant]

REACTIONS (3)
  - ANIMAL BITE [None]
  - LOCALISED OSTEOARTHRITIS [None]
  - WOUND INFECTION [None]
